FAERS Safety Report 19701647 (Version 5)
Quarter: 2021Q3

REPORT INFORMATION
  Report Type: Report from Study
  Country: BE (occurrence: BE)
  Receive Date: 20210813
  Receipt Date: 20210929
  Transmission Date: 20211014
  Serious: Yes (Hospitalization)
  Sender: FDA-Public Use
  Company Number: NVSC2021BE173806

PATIENT
  Age: 38 Year
  Sex: Male
  Weight: 89.2 kg

DRUGS (13)
  1. MYCOPHENOLATE MOFETIL. [Suspect]
     Active Substance: MYCOPHENOLATE MOFETIL
     Indication: RENAL TRANSPLANT
     Dosage: UNK
     Route: 048
     Dates: start: 20191029
  2. ISCALIMAB [Suspect]
     Active Substance: ISCALIMAB
     Indication: RENAL TRANSPLANT
     Dosage: 17 ML, ONCE/SINGLE
     Route: 042
     Dates: start: 20191029, end: 20210720
  3. PRAREDUCT [Concomitant]
     Active Substance: PRAVASTATIN SODIUM
     Indication: HYPERCHOLESTEROLAEMIA
     Dosage: UNK
     Route: 065
     Dates: start: 20200930, end: 20210730
  4. SOLU?CORTEF [Concomitant]
     Active Substance: HYDROCORTISONE SODIUM SUCCINATE
     Indication: PROPHYLAXIS AGAINST TRANSPLANT REJECTION
     Dosage: UNK
     Route: 065
     Dates: start: 20210731, end: 20210731
  5. ENTOCORT [Concomitant]
     Active Substance: BUDESONIDE
     Indication: ENTERITIS
     Dosage: UNK
     Route: 065
     Dates: start: 20210724, end: 20210728
  6. MEDROL [Concomitant]
     Active Substance: METHYLPREDNISOLONE
     Indication: PROPHYLAXIS AGAINST TRANSPLANT REJECTION
     Dosage: UNK
     Route: 065
     Dates: start: 20210623, end: 20210731
  7. PANTOMED [Concomitant]
     Indication: PROPHYLAXIS
     Dosage: UNK
     Route: 065
     Dates: start: 20191110, end: 20210731
  8. EMCONCOR [Concomitant]
     Active Substance: BISOPROLOL FUMARATE
     Indication: HYPERTENSION
     Dosage: UNK
     Route: 065
     Dates: start: 20201103, end: 20210713
  9. MOXONIDINE [Concomitant]
     Active Substance: MOXONIDINE
     Indication: HYPERTENSION
     Dosage: UNK
     Route: 065
     Dates: start: 20200120, end: 20210730
  10. ENTOCORT [Concomitant]
     Active Substance: BUDESONIDE
     Indication: PROPHYLAXIS
     Dosage: UNK
     Route: 065
     Dates: start: 20210729, end: 20210731
  11. VANCOMYCIN [Concomitant]
     Active Substance: VANCOMYCIN
     Indication: CLOSTRIDIAL INFECTION
     Dosage: UNK
     Route: 065
     Dates: start: 20210709, end: 20210720
  12. SOLU?CORTEF [Concomitant]
     Active Substance: HYDROCORTISONE SODIUM SUCCINATE
     Dosage: UNK
     Route: 065
     Dates: start: 20210801, end: 20210801
  13. SPORANOX [Concomitant]
     Active Substance: ITRACONAZOLE
     Indication: GASTROINTESTINAL CANDIDIASIS
     Dosage: UNK
     Route: 065
     Dates: start: 20210709, end: 20210718

REACTIONS (1)
  - Enteritis [Recovered/Resolved with Sequelae]

NARRATIVE: CASE EVENT DATE: 20210729
